FAERS Safety Report 20432216 (Version 9)
Quarter: 2022Q1

REPORT INFORMATION
  Report Type: Report from Study
  Country: CN (occurrence: None)
  Receive Date: 20220204
  Receipt Date: 20220315
  Transmission Date: 20220423
  Serious: Yes (Hospitalization)
  Sender: FDA-Public Use
  Company Number: CN-Eisai Medical Research-EC-2022-107975

PATIENT
  Age: 56 Year
  Sex: Male
  Weight: 71.5 kg

DRUGS (14)
  1. LENVATINIB [Suspect]
     Active Substance: LENVATINIB
     Indication: Hepatocellular carcinoma
     Route: 048
     Dates: start: 20211124, end: 20220125
  2. LENVATINIB [Suspect]
     Active Substance: LENVATINIB
     Route: 048
     Dates: start: 20220208
  3. PEMBROLIZUMAB [Suspect]
     Active Substance: PEMBROLIZUMAB
     Indication: Hepatocellular carcinoma
     Dosage: QUAVONLIMAB (MK-1308) 25 MG PLUS PEMBROLIZUMAB (MK-3475) 400 MG
     Route: 041
     Dates: start: 20211124, end: 20211124
  4. PEMBROLIZUMAB [Suspect]
     Active Substance: PEMBROLIZUMAB
     Dosage: QUAVONLIMAB (MK-1308) 25 MG PLUS PEMBROLIZUMAB (MK-3475) 400 MG
     Route: 041
     Dates: start: 20220105, end: 20220105
  5. PEMBROLIZUMAB [Suspect]
     Active Substance: PEMBROLIZUMAB
     Dosage: QUAVONLIMAB (MK-1308) 25 MG PLUS PEMBROLIZUMAB (MK-3475) 400 MG
     Route: 041
     Dates: start: 20220216
  6. ENTECAVIR [Concomitant]
     Active Substance: ENTECAVIR
     Dates: start: 2016
  7. ESOMEPRAZOLE MAGNESIUM [Concomitant]
     Active Substance: ESOMEPRAZOLE MAGNESIUM
     Dates: start: 20211024
  8. GLUTATHIONE [Concomitant]
     Active Substance: GLUTATHIONE
     Dates: start: 20211206
  9. VALSARTAN [Concomitant]
     Active Substance: VALSARTAN
     Dates: start: 20211214, end: 20220126
  10. NIFEDIPINE [Concomitant]
     Active Substance: NIFEDIPINE
     Dates: start: 20211225, end: 20220126
  11. CODEINE PHOSPHATE AND PLATYCODON [Concomitant]
     Dates: start: 20220105, end: 20220112
  12. QUAVONLIMAB [Suspect]
     Active Substance: QUAVONLIMAB
  13. QUAVONLIMAB [Suspect]
     Active Substance: QUAVONLIMAB
  14. QUAVONLIMAB [Suspect]
     Active Substance: QUAVONLIMAB

REACTIONS (1)
  - Malaise [Recovered/Resolved]

NARRATIVE: CASE EVENT DATE: 20220115
